FAERS Safety Report 5374447-3 (Version None)
Quarter: 2007Q2

REPORT INFORMATION
  Report Type: 
  Country: None (occurrence: None)
  Receive Date: 20070629
  Receipt Date: 20070618
  Transmission Date: 20071010
  Serious: Yes (Hospitalization)
  Sender: FDA-Public Use
  Company Number: US-JNJFOC-20070602784

PATIENT
  Sex: Female
  Weight: 69.4 kg

DRUGS (11)
  1. DOXORUBICIN HCL [Suspect]
     Indication: OVARIAN CANCER
     Dosage: 3RD CYCLE RECEIVED ON 31-MAY-2007
     Route: 042
  2. TRABECTEDIN (YONDELIS) [Suspect]
     Indication: OVARIAN CANCER
     Route: 042
  3. NORVASC [Concomitant]
     Route: 065
  4. EFFEXOR [Concomitant]
     Route: 065
  5. NEURONTIN [Concomitant]
     Route: 065
  6. ATIVAN [Concomitant]
     Dosage: AS NEEDED
     Route: 065
  7. COLACE [Concomitant]
     Dosage: AS NEEDED
     Route: 065
  8. SENOKOT [Concomitant]
     Dosage: AS NEEDED
     Route: 065
  9. DETROL [Concomitant]
     Route: 065
  10. DECADRON [Concomitant]
     Route: 065
  11. DECADRON [Concomitant]
     Indication: NAUSEA
     Route: 065

REACTIONS (3)
  - NAUSEA [None]
  - VOMITING [None]
  - WHITE BLOOD CELL COUNT INCREASED [None]
